FAERS Safety Report 7346396-2 (Version None)
Quarter: 2011Q1

REPORT INFORMATION
  Report Type: 
  Country: None (occurrence: None)
  Receive Date: 20110301
  Receipt Date: 20110216
  Transmission Date: 20110831
  Serious: Yes (Death)
  Sender: FDA-Public Use
  Company Number: 2011BN000009

PATIENT
  Age: 59 Year
  Sex: Female

DRUGS (9)
  1. VINCRISTINE [Concomitant]
  2. DEXAMETHASONE [Concomitant]
  3. MELPHALAN HYDROCHLORIDE [Suspect]
     Indication: MANTLE CELL LYMPHOMA STAGE IV
     Dosage: 265 MG, IV
     Route: 042
  4. ETOPOSIDE [Suspect]
     Indication: MANTLE CELL LYMPHOMA STAGE IV
     Dosage: 190 MG, BID, IV
     Route: 042
  5. RITUXIMAB [Concomitant]
  6. CYTARABINE [Suspect]
     Indication: MANTLE CELL LYMPHOMA STAGE IV
     Dosage: 190 MG, BID, IV
     Route: 042
  7. CYCLOPHOSPHAMIDE [Concomitant]
  8. DOXORUBICIN [Concomitant]
  9. CARMUSTINE [Suspect]
     Indication: MANTLE CELL LYMPHOMA STAGE IV
     Dosage: 570 MG, IV
     Route: 042

REACTIONS (5)
  - TACHYCARDIA [None]
  - CARDIAC ARREST [None]
  - PNEUMOTHORAX [None]
  - BRADYCARDIA [None]
  - PULMONARY OEDEMA [None]
